FAERS Safety Report 9555973 (Version 1)
Quarter: 2013Q3

REPORT INFORMATION
  Report Type: Spontaneous
  Country: US (occurrence: None)
  Receive Date: 20130724
  Receipt Date: 20130724
  Transmission Date: 20140515
  Serious: Yes (Other)
  Sender: FDA-Public Use
  Company Number: PHEH2013US007636

PATIENT
  Age: 30 Year
  Sex: Female

DRUGS (4)
  1. GILENYA (FINGOLIMOD) CAPSULE, 0.5MG [Suspect]
     Dosage: 1 DF, QD, ORAL
     Route: 048
  2. CENTRUM (MINERALS NOS, VITAMINS NOS) TABLET [Concomitant]
  3. ORTHO TRI-CYCLEN LO (ETHINYLESTRADIOL, NORGESTIMATE) [Concomitant]
  4. VITAMIN B12 (CYANOCOBALAMIN) TABLET [Concomitant]

REACTIONS (1)
  - Hypoaesthesia [None]
